FAERS Safety Report 16762289 (Version 1)
Quarter: 2019Q3

REPORT INFORMATION
  Report Type: Spontaneous
  Country: US (occurrence: US)
  Receive Date: 20190831
  Receipt Date: 20190831
  Transmission Date: 20191005
  Serious: No
  Sender: FDA-Public Use
  Company Number: US-GLAXOSMITHKLINE-A0836282A

PATIENT
  Age: 7 Year
  Sex: Female
  Weight: 42 kg

DRUGS (2)
  1. RELENZA [Suspect]
     Active Substance: ZANAMIVIR
     Indication: INFLUENZA
     Dosage: 10 MG, U
     Route: 055
     Dates: start: 20090901, end: 20090902
  2. ZYRTEC SYRUP [Concomitant]
     Route: 048

REACTIONS (1)
  - Chest pain [Recovered/Resolved]

NARRATIVE: CASE EVENT DATE: 20090901
